FAERS Safety Report 9966239 (Version 1)
Quarter: 2014Q1

REPORT INFORMATION
  Report Type: Report from Study
  Country: US (occurrence: US)
  Receive Date: 20140305
  Receipt Date: 20140305
  Transmission Date: 20141002
  Serious: No
  Sender: FDA-Public Use
  Company Number: US-ABBVIE-13P-163-1122125-00

PATIENT
  Age: 59 Year
  Sex: Female

DRUGS (4)
  1. HUMIRA [Suspect]
     Indication: PSORIASIS
     Dates: start: 2010
  2. HUMIRA [Suspect]
     Dates: start: 201305
  3. HUMALOG [Concomitant]
     Indication: PRODUCT USED FOR UNKNOWN INDICATION
     Dosage: 70/30 INSULIN SLIDING SCALE BEFORE MEALS AND AT BEDTIME
  4. LIPITOR [Concomitant]
     Indication: BLOOD CHOLESTEROL
     Dosage: PATIENT DOES NOT REMEMBER THE STRENGTH

REACTIONS (3)
  - Drug administration error [Recovered/Resolved]
  - Economic problem [Recovered/Resolved]
  - Psoriasis [Recovered/Resolved]
